FAERS Safety Report 8542257-1 (Version None)
Quarter: 2012Q3

REPORT INFORMATION
  Report Type: 
  Country: None (occurrence: None)
  Receive Date: 20120726
  Receipt Date: 20120319
  Transmission Date: 20120928
  Serious: No
  Sender: FDA-Public Use
  Company Number: US-ASTRAZENECA-2011SE60925

PATIENT
  Age: 55 Year
  Sex: Female

DRUGS (2)
  1. SEROQUEL [Suspect]
     Indication: BIPOLAR DISORDER
     Dosage: 1000 MG IN THE MORNING AND 900 MG AT NIGHT
     Route: 048
  2. SEROQUEL [Suspect]
     Dosage: 1000 MG AT NOON AND 900 MG AT NIGHT
     Route: 048

REACTIONS (3)
  - VERTIGO [None]
  - WRONG TECHNIQUE IN DRUG USAGE PROCESS [None]
  - DRUG PRESCRIBING ERROR [None]
